FAERS Safety Report 7262705-7 (Version None)
Quarter: 2011Q1

REPORT INFORMATION
  Report Type: 
  Country: None (occurrence: None)
  Receive Date: 20110130
  Receipt Date: 20101014
  Transmission Date: 20110831
  Serious: No
  Sender: FDA-Public Use
  Company Number: US-ABBOTT-10P-163-0673779-00

PATIENT
  Sex: Male
  Weight: 81.72 kg

DRUGS (9)
  1. VITAMIN B-12 [Concomitant]
     Indication: ANAEMIA
  2. OMEGA PRO OIL [Concomitant]
     Indication: SUPPLEMENTATION THERAPY
  3. EXTRA C [Concomitant]
     Indication: ANAEMIA
  4. SEROQUEL [Concomitant]
     Indication: TOURETTE'S DISORDER
  5. IMURAN [Concomitant]
     Indication: CROHN'S DISEASE
  6. PENTASA [Concomitant]
     Indication: CROHN'S DISEASE
  7. ALIGN [Concomitant]
     Indication: SUPPLEMENTATION THERAPY
  8. HUMIRA [Suspect]
     Indication: CROHN'S DISEASE
     Dates: start: 20091216
  9. PREDNISONE [Concomitant]
     Indication: CROHN'S DISEASE

REACTIONS (1)
  - HALLUCINATION [None]
